FAERS Safety Report 6863237-8 (Version None)
Quarter: 2010Q3

REPORT INFORMATION
  Report Type: 
  Country: None (occurrence: None)
  Receive Date: 20100721
  Receipt Date: 20100714
  Transmission Date: 20110219
  Serious: Yes (Other)
  Sender: FDA-Public Use
  Company Number: PHHY2010CA20305

PATIENT
  Sex: Male

DRUGS (2)
  1. SANDOSTATIN [Suspect]
     Indication: PANCREATIC CARCINOMA
     Dosage: 150 MCG, DAILY
     Route: 058
     Dates: start: 20081101
  2. SANDOSTATIN LAR [Suspect]
     Dosage: 10 MG, QMO
     Route: 030
     Dates: start: 20100420

REACTIONS (8)
  - ASTHENIA [None]
  - CATARACT [None]
  - CATARACT OPERATION [None]
  - CHROMATURIA [None]
  - CONDITION AGGRAVATED [None]
  - DIARRHOEA [None]
  - DYSPNOEA EXERTIONAL [None]
  - MALAISE [None]
